FAERS Safety Report 9520441 (Version 3)
Quarter: 2014Q2

REPORT INFORMATION
  Report Type: Report from Study
  Country: FR (occurrence: FR)
  Receive Date: 20130912
  Receipt Date: 20140403
  Transmission Date: 20141212
  Serious: Yes (Hospitalization)
  Sender: FDA-Public Use
  Company Number: FR-ROCHE-1270729

PATIENT
  Age: 66 Year
  Sex: Female
  Weight: 46 kg

DRUGS (4)
  1. VISMODEGIB [Suspect]
     Indication: BASAL CELL CARCINOMA
     Dosage: LAST DOSE PRIOR TO HYPERCALCEMIA BEING  SERIOUS: 01/SEP/2013.
     Route: 048
     Dates: start: 20130313, end: 20130901
  2. PAROXETINE [Concomitant]
     Indication: DEPRESSION
     Route: 065
     Dates: start: 196301
  3. CHOLECALCIFEROL [Concomitant]
     Indication: OSTEOPOROSIS
     Route: 065
     Dates: start: 200901
  4. ZOLEDRONIC ACID [Concomitant]
     Indication: OSTEOPOROSIS
     Route: 065
     Dates: start: 200901

REACTIONS (1)
  - Hypercalcaemia [Recovered/Resolved]
